FAERS Safety Report 8402792-3 (Version None)
Quarter: 2012Q2

REPORT INFORMATION
  Report Type: 
  Country: None (occurrence: None)
  Receive Date: 20120601
  Receipt Date: 20120522
  Transmission Date: 20120825
  Serious: Yes (Hospitalization)
  Sender: FDA-Public Use
  Company Number: US-ABBOTT-12P-163-0938320-00

PATIENT
  Sex: Female
  Weight: 111.23 kg

DRUGS (6)
  1. PRILOSEC OTC [Concomitant]
     Indication: DYSPEPSIA
  2. HUMIRA [Suspect]
     Indication: CROHN'S DISEASE
     Dates: start: 20100101, end: 20110401
  3. CITRALINE [Concomitant]
     Indication: DEPRESSION
  4. MULTIPLE VITAMINS [Concomitant]
     Indication: VITAMIN SUPPLEMENTATION
  5. LEVOXYL [Concomitant]
     Indication: HYPOTHYROIDISM
  6. VITAMIN D [Concomitant]
     Indication: HYPOVITAMINOSIS

REACTIONS (5)
  - ABSCESS [None]
  - CROHN'S DISEASE [None]
  - INTESTINAL STENOSIS [None]
  - SMALL INTESTINAL PERFORATION [None]
  - ABDOMINAL INFECTION [None]
